FAERS Safety Report 16478816 (Version 2)
Quarter: 2019Q3

REPORT INFORMATION
  Report Type: Not Available
  Country: US (occurrence: US)
  Receive Date: 20190626
  Receipt Date: 20190703
  Transmission Date: 20191004
  Serious: Yes (Death, Hospitalization)
  Sender: FDA-Public Use
  Company Number: US-NEUROCRINE BIOSCIENCES INC.-2019NBI01651

PATIENT
  Age: 73 Year
  Sex: Female

DRUGS (1)
  1. INGREZZA [Suspect]
     Active Substance: VALBENAZINE
     Indication: TARDIVE DYSKINESIA
     Route: 048
     Dates: start: 20190508

REACTIONS (13)
  - Sepsis [Not Recovered/Not Resolved]
  - Hypoglycaemia [Unknown]
  - Restlessness [Unknown]
  - Acute kidney injury [Unknown]
  - Hypotension [Unknown]
  - Hip fracture [Recovered/Resolved]
  - Postoperative wound infection [Not Recovered/Not Resolved]
  - Agitation [Unknown]
  - Parkinson^s disease [Fatal]
  - Pneumonia [Not Recovered/Not Resolved]
  - Diabetes mellitus [Unknown]
  - Pain [Unknown]
  - Fall [Unknown]

NARRATIVE: CASE EVENT DATE: 2019
